FAERS Safety Report 6054959-X (Version None)
Quarter: 2009Q1

REPORT INFORMATION
  Report Type: 
  Country: None (occurrence: None)
  Receive Date: 20090123
  Receipt Date: 20090116
  Transmission Date: 20090719
  Serious: Yes (Other)
  Sender: FDA-Public Use
  Company Number: 2009SP001221

PATIENT
  Age: 69 Year
  Sex: Male

DRUGS (4)
  1. TEMODAL [Suspect]
     Indication: OLIGODENDROGLIOMA
     Dosage: 140 MG; QD; PO 300 MG; QD; PO
     Route: 048
     Dates: start: 20080704, end: 20080801
  2. TEMODAL [Suspect]
     Indication: OLIGODENDROGLIOMA
     Dosage: 140 MG; QD; PO 300 MG; QD; PO
     Route: 048
     Dates: start: 20080910, end: 20080914
  3. KEPPRA [Suspect]
     Indication: DRUG USE FOR UNKNOWN INDICATION
     Dosage: 1000 MG; QD; PO 500 MG; QD; PO
     Route: 048
     Dates: start: 20080704, end: 20080909
  4. KEPPRA [Suspect]
     Indication: DRUG USE FOR UNKNOWN INDICATION
     Dosage: 1000 MG; QD; PO 500 MG; QD; PO
     Route: 048
     Dates: start: 20080910, end: 20081015

REACTIONS (2)
  - BLOOD CREATINE INCREASED [None]
  - PROTEINURIA [None]
